FAERS Safety Report 7544314-5 (Version None)
Quarter: 2011Q2

REPORT INFORMATION
  Report Type: 
  Country: None (occurrence: None)
  Receive Date: 20110613
  Receipt Date: 20080208
  Transmission Date: 20111010
  Serious: Yes (Hospitalization)
  Sender: FDA-Public Use
  Company Number: PHFR2007GB02968

PATIENT
  Sex: Female

DRUGS (6)
  1. ADCAL-D3 [Concomitant]
     Indication: ARTHRITIS
     Route: 048
  2. HALOPERIDOL [Concomitant]
     Indication: SCHIZOPHRENIA
     Dosage: 15 MG,PER DAY
     Route: 048
  3. LOFEPRAMINE [Concomitant]
     Indication: DEPRESSION
     Dosage: 210 MG, PER DAY
     Route: 048
  4. SENNA-MINT WAF [Concomitant]
     Indication: CONSTIPATION
     Dosage: 15 MG/DAY
     Route: 048
  5. CLOZAPINE [Suspect]
     Indication: SCHIZOPHRENIA
     Dosage: 200 MG, NOCTE
     Route: 048
     Dates: start: 19930106
  6. PROCYCLIDINE HYDROCHLORIDE 2MG TAB [Concomitant]
     Indication: SCHIZOPHRENIA
     Dosage: 5 MG, PER DAY
     Route: 048

REACTIONS (5)
  - C-REACTIVE PROTEIN DECREASED [None]
  - SEPSIS [None]
  - BLOOD UREA INCREASED [None]
  - URINARY TRACT INFECTION [None]
  - BLOOD CREATININE INCREASED [None]
